FAERS Safety Report 8220304-4 (Version None)
Quarter: 2012Q1

REPORT INFORMATION
  Report Type: 
  Country: None (occurrence: None)
  Receive Date: 20120320
  Receipt Date: 20120316
  Transmission Date: 20120608
  Serious: No
  Sender: FDA-Public Use
  Company Number: US-PFIZER INC-2012070106

PATIENT
  Sex: Male
  Weight: 78.005 kg

DRUGS (3)
  1. LANSOPRAZOLE [Concomitant]
     Dosage: UNK
  2. TRIAMTERENE AND HYDROCHLOROTHIAZIDE [Concomitant]
     Indication: HYPERTENSION
     Dosage: 375/25 MG, 1X/DAY
  3. ANTIVERT [Suspect]
     Dosage: 25 MG, 3X/DAY
     Route: 048

REACTIONS (3)
  - BALANCE DISORDER [None]
  - NAUSEA [None]
  - DIZZINESS [None]
